FAERS Safety Report 7098835-2 (Version None)
Quarter: 2010Q4

REPORT INFORMATION
  Report Type: 
  Country: None (occurrence: None)
  Receive Date: 20101112
  Receipt Date: 20080612
  Transmission Date: 20110411
  Serious: No
  Sender: FDA-Public Use
  Company Number: US-KINGPHARMUSA00001-K200800694

PATIENT
  Sex: Female
  Weight: 58.957 kg

DRUGS (5)
  1. LEVOXYL [Suspect]
     Indication: HYPOTHYROIDISM
     Dosage: 75 MCG, QD
     Dates: start: 20080514
  2. LEVOXYL [Suspect]
     Dosage: 50 MCG, UNK
     Dates: end: 20070101
  3. BIRTH CONTOLL PILLS [Concomitant]
     Indication: CONTRACEPTION
  4. ALLEGRA [Concomitant]
     Indication: HYPERSENSITIVITY
  5. PRENATAL VITAMINS /01549301/ [Concomitant]
     Dosage: UNK, UNK

REACTIONS (3)
  - DRUG EXPOSURE DURING PREGNANCY [None]
  - DRUG EXPOSURE VIA BREAST MILK [None]
  - RASH [None]
